FAERS Safety Report 20834644 (Version 3)
Quarter: 2022Q2

REPORT INFORMATION
  Report Type: Other
  Country: DK (occurrence: DK)
  Receive Date: 20220516
  Receipt Date: 20220621
  Transmission Date: 20220721
  Serious: Yes (Life-Threatening, Hospitalization)
  Sender: FDA-Public Use
  Company Number: DK-ASTELLAS-2022US017656

PATIENT
  Age: 58 Year
  Sex: Male

DRUGS (2)
  1. AMPHOTERICIN B [Suspect]
     Active Substance: AMPHOTERICIN B
     Indication: Aspergillus infection
     Route: 042
     Dates: start: 20220425, end: 20220425
  2. AMPHOTERICIN B [Suspect]
     Active Substance: AMPHOTERICIN B
     Indication: Pneumonia
     Dosage: UNK UNK, UNKNOWN FREQ.(STRENGTH: 50 MG)
     Route: 055
     Dates: start: 202204

REACTIONS (8)
  - Chest pain [Recovering/Resolving]
  - Cyanosis [Unknown]
  - Dyspnoea [Unknown]
  - Oxygen saturation decreased [Recovering/Resolving]
  - Renal pain [Recovering/Resolving]
  - Back pain [Recovering/Resolving]
  - Respiration abnormal [Recovering/Resolving]
  - Suspected product quality issue [Unknown]

NARRATIVE: CASE EVENT DATE: 20220425
